FAERS Safety Report 5907580-5 (Version None)
Quarter: 2008Q4

REPORT INFORMATION
  Report Type: 
  Country: None (occurrence: None)
  Receive Date: 20081003
  Receipt Date: 20080929
  Transmission Date: 20090506
  Serious: Yes (Other)
  Sender: FDA-Public Use
  Company Number: US-MERCK-0806USA08955

PATIENT
  Age: 54 Year
  Sex: Female
  Weight: 86 kg

DRUGS (7)
  1. JANUVIA [Concomitant]
     Indication: DIABETES MELLITUS
     Route: 048
     Dates: start: 20080101, end: 20080601
  2. JANUVIA [Concomitant]
     Route: 048
     Dates: start: 20080101
  3. JANUMET [Suspect]
     Indication: DIABETES MELLITUS
     Route: 048
     Dates: start: 20080623, end: 20080626
  4. LAMICTAL [Concomitant]
     Route: 065
  5. DEPAKOTE [Concomitant]
     Route: 065
  6. ASPIRIN [Concomitant]
     Route: 065
  7. ZOLOFT [Concomitant]
     Route: 065

REACTIONS (1)
  - COMPLEX PARTIAL SEIZURES [None]
